FAERS Safety Report 5126918-2 (Version None)
Quarter: 2006Q4

REPORT INFORMATION
  Report Type: 
  Country: None (occurrence: None)
  Receive Date: 20061010
  Receipt Date: 20060925
  Transmission Date: 20070319
  Serious: Yes (Hospitalization)
  Sender: FDA-Public Use
  Company Number: 2006119381

PATIENT

DRUGS (3)
  1. BEXTRA [Suspect]
     Dates: start: 20030101, end: 20041201
  2. CELEBREX [Suspect]
     Dates: start: 20040619, end: 20041211
  3. VIOXX [Suspect]
     Dates: start: 19990501, end: 20030101

REACTIONS (2)
  - CEREBROVASCULAR ACCIDENT [None]
  - TRANSIENT ISCHAEMIC ATTACK [None]
